FAERS Safety Report 16766781 (Version 1)
Quarter: 2019Q4

REPORT INFORMATION
  Report Type: Spontaneous
  Country: US (occurrence: US)
  Receive Date: 20190901
  Receipt Date: 20190901
  Transmission Date: 20200122
  Serious: No
  Sender: FDA-Public Use
  Company Number: None

PATIENT
  Age: 43 Year
  Sex: Male
  Weight: 90 kg

DRUGS (1)
  1. CHANTIX [Suspect]
     Active Substance: VARENICLINE TARTRATE
     Indication: SMOKING CESSATION THERAPY

REACTIONS (8)
  - Withdrawal syndrome [None]
  - Depression [None]
  - Memory impairment [None]
  - Irritability [None]
  - Decreased interest [None]
  - Therapy cessation [None]
  - Suicidal ideation [None]
  - Mental impairment [None]
